FAERS Safety Report 8476099 (Version 4)
Quarter: 2014Q1

REPORT INFORMATION
  Report Type: Report from Study
  Country: JP (occurrence: JP)
  Receive Date: 20120326
  Receipt Date: 20140204
  Transmission Date: 20141002
  Serious: Yes (Hospitalization, Other)
  Sender: FDA-Public Use
  Company Number: JP-VERTEX PHARMACEUTICALS INC.-AE-2012-004088

PATIENT
  Age: 70 Year
  Sex: Male

DRUGS (5)
  1. VX-950 (TELAPREVIR) [Suspect]
     Indication: CHRONIC HEPATITIS C
     Dosage: 2250 MG, QD
     Route: 048
     Dates: start: 20111209, end: 20120219
  2. REBETOL [Suspect]
     Indication: CHRONIC HEPATITIS C
     Dosage: 600 MG, QD
     Route: 048
     Dates: start: 20111209, end: 20120219
  3. PEGINTRON [Suspect]
     Indication: CHRONIC HEPATITIS C
     Dosage: 80 ?G, QW
     Route: 058
     Dates: start: 20111209, end: 20120217
  4. LANSOPRAZOL [Concomitant]
     Dosage: 15 MG, QD
     Route: 048
     Dates: start: 20120222, end: 20120301
  5. FAMOTIDINE [Concomitant]
     Dosage: 20 MG, QD
     Route: 048
     Dates: start: 20120303

REACTIONS (6)
  - Diabetic ketoacidosis [Recovered/Resolved]
  - Pneumonia aspiration [Recovered/Resolved]
  - Type 2 diabetes mellitus [Recovered/Resolved]
  - Dysphagia [Recovered/Resolved]
  - Pancytopenia [Recovered/Resolved]
  - Anaemia [Recovered/Resolved]
